FAERS Safety Report 7831956-2 (Version None)
Quarter: 2011Q4

REPORT INFORMATION
  Report Type: 
  Country: None (occurrence: None)
  Receive Date: 20111021
  Receipt Date: 20111012
  Transmission Date: 20120403
  Serious: Yes (Other)
  Sender: FDA-Public Use
  Company Number: US-RB-032890-11

PATIENT
  Age: 34 Year
  Sex: Female

DRUGS (6)
  1. XANAX [Suspect]
     Indication: PRODUCT USED FOR UNKNOWN INDICATION
     Dosage: UNKNOWN
     Route: 065
  2. CYMBALTA [Concomitant]
     Indication: DEPRESSION
     Dosage: UNKNOWN
  3. LYRICA [Suspect]
     Indication: PRODUCT USED FOR UNKNOWN INDICATION
     Dosage: UNKNOWN
     Route: 065
  4. SUBOXONE [Suspect]
     Indication: DRUG DEPENDENCE
     Dosage: TAKING MORE THAN PRESCRIBED
     Route: 060
     Dates: start: 20110101
  5. LAMICTAL [Concomitant]
     Indication: PRODUCT USED FOR UNKNOWN INDICATION
     Dosage: UNKNOWN
     Route: 065
  6. SUBOXONE [Suspect]
     Route: 060

REACTIONS (5)
  - INTENTIONAL OVERDOSE [None]
  - DRUG ABUSE [None]
  - OVERDOSE [None]
  - FEELING ABNORMAL [None]
  - CONVULSION [None]
